FAERS Safety Report 6648729-9 (Version None)
Quarter: 2010Q1

REPORT INFORMATION
  Report Type: 
  Country: None (occurrence: None)
  Receive Date: 20100324
  Receipt Date: 20100312
  Transmission Date: 20100710
  Serious: Yes (Other)
  Sender: FDA-Public Use
  Company Number: GB-PFIZER INC-2010012669

PATIENT
  Sex: Male

DRUGS (1)
  1. CHAMPIX [Suspect]
     Indication: SMOKING CESSATION THERAPY
     Dosage: UNK
     Dates: end: 20100101

REACTIONS (30)
  - ABDOMINAL PAIN UPPER [None]
  - ABNORMAL DREAMS [None]
  - ACNE [None]
  - AFFECT LABILITY [None]
  - AGGRESSION [None]
  - ANGER [None]
  - BACK PAIN [None]
  - CHILLS [None]
  - DISTURBANCE IN ATTENTION [None]
  - ERUCTATION [None]
  - FATIGUE [None]
  - FEELING ABNORMAL [None]
  - FEELING OF BODY TEMPERATURE CHANGE [None]
  - FLATULENCE [None]
  - GASTROINTESTINAL SOUNDS ABNORMAL [None]
  - HALLUCINATION, AUDITORY [None]
  - HOMICIDAL IDEATION [None]
  - ILL-DEFINED DISORDER [None]
  - INSOMNIA [None]
  - IRRITABILITY [None]
  - MEMORY IMPAIRMENT [None]
  - MOOD ALTERED [None]
  - PANIC REACTION [None]
  - PAROSMIA [None]
  - POST-TRAUMATIC STRESS DISORDER [None]
  - RESTLESSNESS [None]
  - SLEEP DISORDER [None]
  - TENSION [None]
  - TREMOR [None]
  - VERBAL ABUSE [None]
